FAERS Safety Report 4280001-7 (Version None)
Quarter: 2004Q1

REPORT INFORMATION
  Report Type: 
  Country: None (occurrence: None)
  Receive Date: 20040126
  Receipt Date: 20040114
  Transmission Date: 20041129
  Serious: No
  Sender: FDA-Public Use
  Company Number: 04P-056-0247222-00

PATIENT

DRUGS (3)
  1. TRICOR [Suspect]
     Dosage: 200 MG, 1 IN 1 D, ORAL
     Route: 048
  2. TRICOR [Suspect]
     Dosage: 160 MG, 1 IN 1 D, PER ORAL
     Route: 048
  3. CLAVULIN [Suspect]

REACTIONS (2)
  - BLOOD CREATINE PHOSPHOKINASE INCREASED [None]
  - DRUG INTERACTION [None]
